FAERS Safety Report 15006055 (Version 1)
Quarter: 2018Q2

REPORT INFORMATION
  Report Type: Spontaneous
  Country: NL (occurrence: NL)
  Receive Date: 20180613
  Receipt Date: 20180613
  Transmission Date: 20180711
  Serious: Yes (Hospitalization, Other)
  Sender: FDA-Public Use
  Company Number: NL-MYLANLABS-2018M1039423

PATIENT
  Age: 36 Year
  Sex: Female

DRUGS (1)
  1. LEVONORGESTREL. [Suspect]
     Active Substance: LEVONORGESTREL
     Indication: CONTRACEPTION
     Dosage: LEVONORGESTREL-RELEASING INTRAUTERINE DEVICE
     Route: 015

REACTIONS (4)
  - Ectopic pregnancy [Recovering/Resolving]
  - Procedural haemorrhage [Recovering/Resolving]
  - Drug ineffective [Unknown]
  - Pregnancy with implant contraceptive [Recovered/Resolved]
